FAERS Safety Report 8771842 (Version 1)
Quarter: 2012Q4

REPORT INFORMATION
  Report Type: 
  Country: US (occurrence: US)
  Receive Date: 20120906
  Receipt Date: 20120906
  Transmission Date: 20130627
  Serious: Yes (Other)
  Sender: FDA-Public Use
  Company Number: US-ASTRAZENECA-2012SE65140

PATIENT
  Age: 18 Month
  Sex: Female

DRUGS (5)
  1. SEROQUEL [Suspect]
     Indication: BIPOLAR II DISORDER
     Route: 064
     Dates: start: 200909, end: 201006
  2. SEROQUEL [Suspect]
     Indication: SCHIZOPHRENIA
     Route: 064
     Dates: start: 200909, end: 201006
  3. SEROQUEL [Suspect]
     Indication: BIPOLAR II DISORDER
     Route: 064
     Dates: start: 200909, end: 201006
  4. SEROQUEL [Suspect]
     Indication: SCHIZOPHRENIA
     Route: 064
     Dates: start: 200909, end: 201006
  5. PRENATAL VITAMINS [Concomitant]
     Indication: PREGNANCY
     Route: 048

REACTIONS (5)
  - Aggression [Unknown]
  - Mood swings [Unknown]
  - Disturbance in attention [Unknown]
  - Anger [Unknown]
  - Psychomotor hyperactivity [Unknown]
